FAERS Safety Report 7546146-0 (Version None)
Quarter: 2011Q2

REPORT INFORMATION
  Report Type: 
  Country: None (occurrence: None)
  Receive Date: 20110614
  Receipt Date: 20031002
  Transmission Date: 20111010
  Serious: Yes (Death)
  Sender: FDA-Public Use
  Company Number: PHNR2003AU01135

PATIENT
  Sex: Male

DRUGS (2)
  1. CLOZAPINE [Suspect]
     Dosage: 200 - 1000 MG, QD
     Dates: start: 20010524
  2. CLOZAPINE [Suspect]
     Indication: SCHIZOPHRENIA
     Dosage: 12 -500 MG, QD
     Dates: start: 19960404, end: 19970901

REACTIONS (1)
  - DEATH [None]
